FAERS Safety Report 13342569 (Version 1)
Quarter: 2017Q1

REPORT INFORMATION
  Report Type: Spontaneous
  Country: PL (occurrence: PL)
  Receive Date: 20170316
  Receipt Date: 20170316
  Transmission Date: 20170428
  Serious: Yes (Hospitalization)
  Sender: FDA-Public Use
  Company Number: PL-PFIZER INC-2017108222

PATIENT
  Sex: Male

DRUGS (2)
  1. CONTROLOC [Suspect]
     Active Substance: PANTOPRAZOLE SODIUM
     Dosage: 40 MG, UNK
     Route: 042
     Dates: start: 2017, end: 2017
  2. CONTROLOC [Suspect]
     Active Substance: PANTOPRAZOLE SODIUM
     Indication: GASTROINTESTINAL HAEMORRHAGE
     Dosage: 80 MG, UNK
     Route: 040

REACTIONS (2)
  - Injection site phlebitis [Recovered/Resolved]
  - Panniculitis [Recovered/Resolved]

NARRATIVE: CASE EVENT DATE: 2017
